FAERS Safety Report 6311571-2 (Version None)
Quarter: 2009Q3

REPORT INFORMATION
  Report Type: 
  Country: None (occurrence: None)
  Receive Date: 20090817
  Receipt Date: 20090417
  Transmission Date: 20100115
  Serious: Yes (Hospitalization, Other)
  Sender: FDA-Public Use
  Company Number: US-PFIZER INC-2009197715

PATIENT
  Sex: Female
  Weight: 56.689 kg

DRUGS (17)
  1. DILANTIN-125 [Suspect]
     Indication: CONVULSION
  2. CHANTIX [Suspect]
     Indication: SMOKING CESSATION THERAPY
     Dosage: FREQUENCY: EVERY DAY;
     Dates: start: 20090402
  3. CHLORZOXAZONE [Concomitant]
     Dosage: UNK
  4. HYDROCODONE [Concomitant]
     Dosage: UNK
  5. AMITRIPTYLINE [Concomitant]
     Dosage: UNK
  6. LIPITOR [Concomitant]
     Dosage: UNK
  7. ALPRAZOLAM [Concomitant]
     Dosage: UNK
  8. SEROQUEL [Concomitant]
     Dosage: UNK
  9. VESICARE [Concomitant]
     Dosage: UNK
  10. LEVOTHYROXINE [Concomitant]
     Dosage: UNK
  11. OMEPRAZOLE [Concomitant]
     Dosage: UNK
  12. OYST-CAL [Concomitant]
     Dosage: UNK
  13. MECLIZINE [Concomitant]
     Dosage: UNK
  14. SODIUM BICARBONATE [Concomitant]
     Dosage: UNK
  15. FERROUS GLUCONATE [Concomitant]
     Dosage: UNK
  16. ELAVIL [Concomitant]
     Dosage: UNK
  17. XANAX [Concomitant]
     Dosage: UNK

REACTIONS (7)
  - CONVULSION [None]
  - DRUG TOXICITY [None]
  - DYSARTHRIA [None]
  - FALL [None]
  - INCORRECT DOSE ADMINISTERED [None]
  - OVERDOSE [None]
  - SUICIDAL IDEATION [None]
